FAERS Safety Report 25932392 (Version 1)
Quarter: 2025Q4

REPORT INFORMATION
  Report Type: Spontaneous
  Country: US (occurrence: US)
  Receive Date: 20251016
  Receipt Date: 20251016
  Transmission Date: 20260117
  Serious: Yes (Life-Threatening, Hospitalization, Other)
  Sender: ALKEM
  Company Number: US-ALKEM LABORATORIES LIMITED-US-ALKEM-2025-11095

PATIENT
  Age: 4 Month
  Sex: Male

DRUGS (3)
  1. VIGABATRIN [Suspect]
     Active Substance: VIGABATRIN
     Indication: Infantile spasms
     Dosage: 48 MILLIGRAM/KILOGRAM, BID
     Route: 065
  2. VIGABATRIN [Suspect]
     Active Substance: VIGABATRIN
     Dosage: 48 MILLIGRAM/KILOGRAM, TID
     Route: 065
  3. VIGABATRIN [Suspect]
     Active Substance: VIGABATRIN
     Dosage: 108 MILLIGRAM/KILOGRAM, TID
     Route: 065

REACTIONS (2)
  - Hydrocephalus [Recovering/Resolving]
  - Magnetic resonance imaging head abnormal [Recovering/Resolving]
